FAERS Safety Report 15504765 (Version 1)
Quarter: 2018Q4

REPORT INFORMATION
  Report Type: Spontaneous
  Country: US (occurrence: US)
  Receive Date: 20181016
  Receipt Date: 20181016
  Transmission Date: 20190205
  Serious: Yes (Other)
  Sender: FDA-Public Use
  Company Number: US-SA-2018SA277008

PATIENT
  Age: 29 Year
  Sex: Female

DRUGS (2)
  1. ICY HOT [MENTHOL] [Concomitant]
  2. ICY HOT MEDICATED NO MESS APPLICATOR [Suspect]
     Active Substance: MENTHOL
     Dosage: UNK
     Dates: start: 20180828

REACTIONS (1)
  - Burns third degree [Unknown]

NARRATIVE: CASE EVENT DATE: 20180828
